FAERS Safety Report 16329484 (Version 1)
Quarter: 2019Q2

REPORT INFORMATION
  Report Type: Spontaneous
  Country: US (occurrence: US)
  Receive Date: 20190520
  Receipt Date: 20190520
  Transmission Date: 20190711
  Serious: No
  Sender: FDA-Public Use
  Company Number: US-TEVA-2019-US-1050874

PATIENT
  Sex: Female

DRUGS (1)
  1. FLUTICASONE SALMETEROL [Suspect]
     Active Substance: FLUTICASONE PROPIONATE\SALMETEROL XINAFOATE
     Dosage: 2 PUFFS TWICE A DAY
     Route: 065

REACTIONS (3)
  - Paraesthesia oral [Unknown]
  - Throat irritation [Unknown]
  - Oropharyngeal pain [Unknown]
